FAERS Safety Report 7004263-8 (Version None)
Quarter: 2010Q3

REPORT INFORMATION
  Report Type: 
  Country: None (occurrence: None)
  Receive Date: 20100921
  Receipt Date: 20100915
  Transmission Date: 20110219
  Serious: Yes (Hospitalization, Other)
  Sender: FDA-Public Use
  Company Number: US-ASTRAZENECA-2007UW03826

PATIENT
  Age: 53 Year
  Sex: Male
  Weight: 181.4 kg

DRUGS (23)
  1. SEROQUEL [Suspect]
     Indication: DEPRESSION
     Dosage: 100-400 MG
     Route: 048
     Dates: start: 19990101, end: 20060101
  2. SEROQUEL [Suspect]
     Route: 048
     Dates: start: 19990111
  3. SEROQUEL [Suspect]
     Dosage: 200-400 MG, DAILY
     Route: 048
     Dates: start: 19990423
  4. SEROQUEL [Suspect]
     Dosage: 25-300 MG
     Route: 048
     Dates: start: 20030919
  5. AVANDIA [Concomitant]
     Route: 048
  6. FLUOXETINE [Concomitant]
     Route: 048
  7. ISOSORBIDE MONONITRATE [Concomitant]
     Route: 048
  8. LORAZEPAM [Concomitant]
     Route: 048
  9. LORAZEPAM [Concomitant]
     Dates: start: 19970101
  10. STARLIX [Concomitant]
     Route: 048
  11. METFORMIN [Concomitant]
     Dosage: 500-1000 MG
     Route: 048
  12. HYZAAR [Concomitant]
     Dosage: 12.5-100 MG
     Route: 048
  13. PROTONIX [Concomitant]
     Route: 048
  14. HALOPERIDOL [Concomitant]
     Dosage: 5 MG/ML
     Route: 065
  15. PROMETHAZINE [Concomitant]
     Dosage: 25 TO 50 MG
     Route: 065
  16. CLONAZEPAM [Concomitant]
     Dosage: 0.5 TO 1 MG
     Route: 048
  17. FUROSEMIDE [Concomitant]
     Route: 048
  18. NITROGLYCERIN [Concomitant]
     Route: 048
  19. PRILOSEC OTC [Concomitant]
     Route: 048
  20. PAXIL [Concomitant]
     Dates: start: 19970101, end: 19990101
  21. PAXIL [Concomitant]
     Dates: start: 19990111
  22. BUSPAR [Concomitant]
     Indication: DEPRESSION
     Dates: start: 19970101
  23. ATIVAN [Concomitant]
     Dates: start: 19970101, end: 19990101

REACTIONS (7)
  - ASTHENIA [None]
  - DIZZINESS [None]
  - DRY MOUTH [None]
  - HYPERGLYCAEMIA [None]
  - PANCREATITIS ACUTE [None]
  - POLYP [None]
  - TYPE 2 DIABETES MELLITUS [None]
